FAERS Safety Report 4808946-7 (Version None)
Quarter: 2005Q4

REPORT INFORMATION
  Report Type: 
  Country: None (occurrence: None)
  Receive Date: 20051025
  Receipt Date: 20050908
  Transmission Date: 20060501
  Serious: Yes (Disabling, Other)
  Sender: FDA-Public Use
  Company Number: JP-BRISTOL-MYERS SQUIBB COMPANY-13112859

PATIENT
  Age: 40 Year
  Sex: Male

DRUGS (4)
  1. EFAVIRENZ [Suspect]
     Indication: HIV INFECTION
     Route: 048
     Dates: start: 20021028
  2. EPIVIR [Concomitant]
     Dates: start: 19970312
  3. BENAMBAX [Concomitant]
  4. RETROVIR [Concomitant]
     Dates: start: 20011114

REACTIONS (2)
  - HALLUCINATION, AUDITORY [None]
  - OSMOPHOBIA [None]
